FAERS Safety Report 7788595-1 (Version None)
Quarter: 2011Q3

REPORT INFORMATION
  Report Type: 
  Country: None (occurrence: None)
  Receive Date: 20110930
  Receipt Date: 20110926
  Transmission Date: 20111222
  Serious: Yes (Other)
  Sender: FDA-Public Use
  Company Number: US-AMGEN-USASP2011049575

PATIENT
  Age: 54 Year
  Sex: Male

DRUGS (3)
  1. PLAQUENIL [Concomitant]
     Dosage: 2 MG, QD
     Dates: start: 20100101
  2. ENBREL [Suspect]
     Indication: RHEUMATOID ARTHRITIS
     Dosage: 50 MG, QWK
     Dates: start: 20110805
  3. LISINOPRIL [Concomitant]

REACTIONS (4)
  - DIZZINESS [None]
  - FATIGUE [None]
  - RENAL FAILURE CHRONIC [None]
  - PAIN [None]
